FAERS Safety Report 6203921-2 (Version None)
Quarter: 2009Q2

REPORT INFORMATION
  Report Type: 
  Country: None (occurrence: None)
  Receive Date: 20090527
  Receipt Date: 20090519
  Transmission Date: 20091009
  Serious: Yes (Other)
  Sender: FDA-Public Use
  Company Number: A0785057A

PATIENT
  Age: 88 Year
  Sex: Female

DRUGS (3)
  1. ADVAIR HFA [Suspect]
     Indication: DRUG USE FOR UNKNOWN INDICATION
     Route: 055
     Dates: end: 20090519
  2. SEREVENT [Suspect]
     Indication: DRUG USE FOR UNKNOWN INDICATION
     Route: 055
  3. VITAMINS [Concomitant]

REACTIONS (5)
  - DRUG INEFFECTIVE [None]
  - DYSPHONIA [None]
  - ERYTHEMA [None]
  - PNEUMONIA [None]
  - PRURITUS [None]
